FAERS Safety Report 6713430-X (Version None)
Quarter: 2010Q2

REPORT INFORMATION
  Report Type: 
  Country: None (occurrence: None)
  Receive Date: 20100503
  Receipt Date: 20090706
  Transmission Date: 20101027
  Serious: No
  Sender: FDA-Public Use
  Company Number: 2009-00343

PATIENT
  Sex: Female

DRUGS (1)
  1. ALL ZICAM PRODUCTS [Suspect]
     Dosage: LATE OCT 2008
     Dates: start: 20081001

REACTIONS (2)
  - AGEUSIA [None]
  - ANOSMIA [None]
